FAERS Safety Report 4366938-9 (Version None)
Quarter: 2004Q2

REPORT INFORMATION
  Report Type: 
  Country: None (occurrence: None)
  Receive Date: 20040524
  Receipt Date: 20040507
  Transmission Date: 20050107
  Serious: Yes (Hospitalization)
  Sender: FDA-Public Use
  Company Number: 197779

PATIENT
  Age: 66 Year
  Sex: Female
  Weight: 77.1115 kg

DRUGS (1)
  1. AVONEX [Suspect]
     Indication: MULTIPLE SCLEROSIS
     Dates: end: 20040210

REACTIONS (6)
  - ASTHENIA [None]
  - BLOOD PRESSURE DECREASED [None]
  - DIZZINESS [None]
  - FALL [None]
  - THROMBOSIS [None]
  - UPPER LIMB FRACTURE [None]
